FAERS Safety Report 4716593-0 (Version None)
Quarter: 2005Q3

REPORT INFORMATION
  Report Type: 
  Country: None (occurrence: None)
  Receive Date: 20050713
  Receipt Date: 20050630
  Transmission Date: 20060218
  Serious: Yes (Other)
  Sender: FDA-Public Use
  Company Number: 2005094730

PATIENT
  Age: 59 Year
  Sex: Male
  Weight: 105 kg

DRUGS (1)
  1. GENOTROPIN [Suspect]
     Indication: HYPOPITUITARISM
     Dosage: 0.2 MG (0. 2 MG, DAILY)
     Dates: start: 20020604, end: 20050623

REACTIONS (2)
  - NEOPLASM RECURRENCE [None]
  - NON-SECRETORY ADENOMA OF PITUITARY [None]
